FAERS Safety Report 8305839-8 (Version None)
Quarter: 2012Q2

REPORT INFORMATION
  Report Type: 
  Country: None (occurrence: None)
  Receive Date: 20120423
  Receipt Date: 20120413
  Transmission Date: 20120825
  Serious: Yes (Hospitalization)
  Sender: FDA-Public Use
  Company Number: US-VERTEX PHARMACEUTICALS INC.-AE-2012-005442

PATIENT
  Sex: Female

DRUGS (5)
  1. RIBAVIRIN [Concomitant]
     Indication: HEPATITIS C
     Route: 048
     Dates: start: 20120302, end: 20120309
  2. PEGASYS [Concomitant]
     Route: 058
     Dates: start: 20120314
  3. PEGASYS [Concomitant]
     Indication: HEPATITIS C
     Route: 058
     Dates: start: 20120302, end: 20120313
  4. INCIVEK [Suspect]
     Indication: HEPATITIS C
     Route: 048
     Dates: start: 20120302
  5. RIBAVIRIN [Concomitant]
     Route: 048
     Dates: start: 20120315

REACTIONS (4)
  - RASH PRURITIC [None]
  - URINARY TRACT INFECTION [None]
  - ANAEMIA [None]
  - RENAL FAILURE [None]
